FAERS Safety Report 9893227 (Version 3)
Quarter: 2014Q1

REPORT INFORMATION
  Report Type: Spontaneous
  Country: GB (occurrence: GB)
  Receive Date: 20140213
  Receipt Date: 20140305
  Transmission Date: 20141002
  Serious: No
  Sender: FDA-Public Use
  Company Number: PHFR2014GB001394

PATIENT
  Sex: Female

DRUGS (5)
  1. CLOZARIL [Suspect]
     Dosage: UNK
     Route: 048
     Dates: start: 20140123
  2. CLOZARIL [Suspect]
     Dosage: 12.5 MG,
     Route: 048
     Dates: start: 20140207
  3. CLOZARIL [Suspect]
     Dosage: 25 MG,
     Route: 048
     Dates: start: 20140208
  4. CLOZARIL [Suspect]
     Dosage: 200-225 MG ONCE A DAY A WEEK AGO
  5. CLOZARIL [Suspect]
     Dosage: 100 MG, QD (OVER LAST 06 SIX DAYS)

REACTIONS (4)
  - Infection [Unknown]
  - Anxiety [Unknown]
  - Body temperature increased [Unknown]
  - Heart rate increased [Not Recovered/Not Resolved]
